FAERS Safety Report 9824138 (Version 2)
Quarter: 2014Q2

REPORT INFORMATION
  Report Type: Spontaneous
  Country: US (occurrence: US)
  Receive Date: 20140116
  Receipt Date: 20140509
  Transmission Date: 20141212
  Serious: Yes (Other)
  Sender: FDA-Public Use
  Company Number: US-GLAXOSMITHKLINE-A1033468A

PATIENT
  Age: 58 Year
  Sex: Male
  Weight: 120 kg

DRUGS (1)
  1. ROSIGLITAZONE MALEATE [Suspect]
     Indication: DIABETES MELLITUS
     Dosage: 4MG TWICE PER DAY
     Route: 048
     Dates: start: 200607, end: 200712

REACTIONS (4)
  - Cardiac disorder [Unknown]
  - Angina pectoris [Unknown]
  - Dyspnoea [Unknown]
  - Hypertension [Unknown]
